FAERS Safety Report 21793363 (Version 3)
Quarter: 2025Q1

REPORT INFORMATION
  Report Type: Report from Study
  Country: US (occurrence: US)
  Receive Date: 20221229
  Receipt Date: 20250208
  Transmission Date: 20250409
  Serious: Yes (Other)
  Sender: ABBVIE
  Company Number: US-ABBVIE-4251898

PATIENT
  Sex: Female

DRUGS (2)
  1. HUMIRA [Suspect]
     Active Substance: ADALIMUMAB
     Indication: Psoriasis
     Dosage: FORM STRENGTH: 40 MG CITRATE FREE
     Route: 058
  2. HUMIRA [Suspect]
     Active Substance: ADALIMUMAB
     Route: 058

REACTIONS (13)
  - Loss of consciousness [Unknown]
  - Ulcer haemorrhage [Unknown]
  - Pain [Unknown]
  - Coronary arterial stent insertion [Unknown]
  - Arthritis [Recovered/Resolved]
  - Unevaluable event [Unknown]
  - Blood pressure decreased [Unknown]
  - Illness [Unknown]
  - Extrasystoles [Unknown]
  - Asthenia [Unknown]
  - Dyspnoea [Unknown]
  - Full blood count decreased [Unknown]
  - Gait disturbance [Unknown]
